FAERS Safety Report 20970946 (Version 1)
Quarter: 2022Q2

REPORT INFORMATION
  Report Type: Spontaneous
  Country: US (occurrence: US)
  Receive Date: 20220616
  Receipt Date: 20220616
  Transmission Date: 20220721
  Serious: No
  Sender: FDA-Public Use
  Company Number: US-SANOFI-01133425

PATIENT

DRUGS (3)
  1. NASACORT [Suspect]
     Active Substance: TRIAMCINOLONE ACETONIDE
     Dosage: UNK
  2. LORATADINE [Concomitant]
     Active Substance: LORATADINE
     Dosage: UNK
  3. SINGULAIR [Concomitant]
     Active Substance: MONTELUKAST SODIUM
     Dosage: UNK

REACTIONS (4)
  - Nasal discomfort [Unknown]
  - Upper-airway cough syndrome [Unknown]
  - Condition aggravated [Unknown]
  - Nasal congestion [Unknown]
